FAERS Safety Report 4938487-8 (Version None)
Quarter: 2006Q1

REPORT INFORMATION
  Report Type: 
  Country: None (occurrence: None)
  Receive Date: 20060309
  Receipt Date: 20060227
  Transmission Date: 20060701
  Serious: Yes (Other)
  Sender: FDA-Public Use
  Company Number: PHFR2006GB00985

PATIENT
  Age: 71 Year

DRUGS (8)
  1. ASPIRIN [Concomitant]
     Dosage: 75 MG, QD
     Route: 048
  2. CAPTOPRIL [Concomitant]
     Dosage: 12.5 MG, TID
     Route: 048
  3. GLYCERYL TRINITRATE [Concomitant]
     Dosage: 400 UG 1 PRN
     Route: 065
  4. QUININE SULPHATE [Concomitant]
     Dosage: 300 MG, QD
     Route: 048
  5. ADIPINE - SLOW RELEASE [Concomitant]
     Dosage: 10 MG, BID
     Route: 048
  6. SALBUTAMOL [Concomitant]
     Dosage: 100UG/DOSE
  7. LANSOPRAZOLE [Concomitant]
     Dosage: 2X 15 MG ONCE DAILY
     Route: 048
  8. DICLOFENAC EPOLAMINE PATCH [Suspect]
     Indication: ARTHRITIS
     Dosage: 50 MG, TID
     Route: 048
     Dates: start: 20060210, end: 20060210

REACTIONS (2)
  - BRONCHOSPASM [None]
  - URTICARIA [None]
